FAERS Safety Report 7650392-5 (Version None)
Quarter: 2011Q3

REPORT INFORMATION
  Report Type: 
  Country: None (occurrence: None)
  Receive Date: 20110802
  Receipt Date: 20110727
  Transmission Date: 20111222
  Serious: Yes (Other)
  Sender: FDA-Public Use
  Company Number: US-B.I. PHARMACEUTICALS,INC./RIDGEFIELD-2011-BP-16933PF

PATIENT
  Age: 66 Year
  Sex: Male

DRUGS (12)
  1. SPIRIVA [Suspect]
     Indication: CHRONIC OBSTRUCTIVE PULMONARY DISEASE
     Dosage: 36 MCG
     Route: 065
  2. METOPROLOL TARTRATE [Concomitant]
  3. OXYCODONE HCL [Concomitant]
  4. CORTISONE SUPPLEMENT [Concomitant]
  5. FOLIC ACID [Concomitant]
  6. VITAMIN D [Concomitant]
  7. CORTISONE CREAM [Concomitant]
  8. VITAMIN B-12 [Concomitant]
  9. LORAZEPAM [Concomitant]
  10. CHANTIX [Suspect]
     Indication: SMOKING CESSATION THERAPY
     Route: 065
     Dates: start: 20070101
  11. SYMBICORT [Suspect]
     Route: 055
  12. FAMOTIDINE [Concomitant]

REACTIONS (2)
  - DYSPNOEA [None]
  - DYSPHONIA [None]
